FAERS Safety Report 5296389-4 (Version None)
Quarter: 2007Q2

REPORT INFORMATION
  Report Type: 
  Country: None (occurrence: None)
  Receive Date: 20070413
  Receipt Date: 20070403
  Transmission Date: 20071010
  Serious: Yes (Life-Threatening)
  Sender: FDA-Public Use
  Company Number: JP-ROCHE-486530

PATIENT
  Age: 26 Year
  Sex: Male

DRUGS (6)
  1. TAMIFLU [Suspect]
     Route: 048
     Dates: start: 20060120, end: 20060120
  2. CLARITHROMYCIN [Concomitant]
     Route: 048
     Dates: start: 20060120
  3. ASTOMIN [Concomitant]
     Route: 048
     Dates: start: 20060120
  4. NEUTASE [Concomitant]
     Route: 048
     Dates: start: 20060120
  5. CALONAL [Concomitant]
     Dosage: AMOUNT OF ONE TIME SINGLE USE: 400 MG.
     Route: 048
     Dates: start: 20060120
  6. VOLTAREN [Concomitant]
     Route: 054
     Dates: start: 20060120, end: 20060120

REACTIONS (1)
  - SUICIDE ATTEMPT [None]
